FAERS Safety Report 8588189-4 (Version None)
Quarter: 2012Q3

REPORT INFORMATION
  Report Type: 
  Country: None (occurrence: None)
  Receive Date: 20120803
  Receipt Date: 20120803
  Transmission Date: 20120928
  Serious: Yes (Hospitalization)
  Sender: FDA-Public Use
  Company Number: None

PATIENT
  Age: 52 Year
  Sex: Female
  Weight: 68.4932 kg

DRUGS (3)
  1. TELAPREVIR 375 MG VERTEX [Suspect]
     Indication: HEPATITIS C
     Dosage: 2 TAB TID PO
     Route: 048
     Dates: start: 20120126, end: 20120206
  2. PEGASYS [Suspect]
     Indication: HEPATITIS C
     Dosage: 180MCG
     Route: 058
     Dates: start: 20120126, end: 20120206
  3. RIBAVIRIN [Suspect]
     Indication: HEPATITIS C
     Dosage: 800MG PO DAILY
     Route: 048
     Dates: start: 20120126, end: 20120206

REACTIONS (5)
  - LEUKOPENIA [None]
  - WAIST CIRCUMFERENCE INCREASED [None]
  - ABDOMINAL PAIN [None]
  - ASCITES [None]
  - THROMBOCYTOPENIA [None]
